FAERS Safety Report 23672432 (Version 3)
Quarter: 2024Q2

REPORT INFORMATION
  Report Type: Spontaneous
  Country: US (occurrence: US)
  Receive Date: 20240326
  Receipt Date: 20240424
  Transmission Date: 20240716
  Serious: No
  Sender: FDA-Public Use
  Company Number: US-PFIZER INC-202400060209

PATIENT
  Age: 14 Year
  Sex: Male
  Weight: 39.01 kg

DRUGS (2)
  1. GENOTROPIN [Suspect]
     Active Substance: SOMATROPIN
     Indication: Growth hormone deficiency
     Dosage: EVERY MORNING
     Dates: start: 202402
  2. ALLERTEK [Concomitant]
     Dosage: UNK

REACTIONS (2)
  - Incorrect dose administered [Unknown]
  - Liquid product physical issue [Not Recovered/Not Resolved]

NARRATIVE: CASE EVENT DATE: 20240308
